FAERS Safety Report 4287913-9 (Version None)
Quarter: 2004Q1

REPORT INFORMATION
  Report Type: 
  Country: None (occurrence: None)
  Receive Date: 20040209
  Receipt Date: 20031028
  Transmission Date: 20041129
  Serious: No
  Sender: FDA-Public Use
  Company Number: US-GLAXOSMITHKLINE-A0431942A

PATIENT
  Age: 27 Year
  Sex: Male

DRUGS (3)
  1. PAXIL [Suspect]
     Dosage: 37.5MG PER DAY
     Route: 048
     Dates: start: 20030901, end: 20031023
  2. PAXIL [Suspect]
     Dosage: 30MG PER DAY
     Route: 048
  3. KLONOPIN [Suspect]
     Route: 065

REACTIONS (6)
  - ANXIETY [None]
  - DIZZINESS [None]
  - DRUG WITHDRAWAL SYNDROME [None]
  - DYSPNOEA [None]
  - PARAESTHESIA [None]
  - TREMOR [None]
